FAERS Safety Report 19959969 (Version 1)
Quarter: 2021Q4

REPORT INFORMATION
  Report Type: Spontaneous
  Country: US (occurrence: US)
  Receive Date: 20211015
  Receipt Date: 20211015
  Transmission Date: 20220303
  Serious: Yes (Death)
  Sender: FDA-Public Use
  Company Number: None

PATIENT
  Sex: Male
  Weight: 69.9 kg

DRUGS (12)
  1. FLUOROURACIL [Suspect]
     Active Substance: FLUOROURACIL
     Indication: Pancreatic carcinoma
     Dosage: ?          OTHER FREQUENCY:EVERY 2 WEEKS;
     Route: 042
  2. OXALIPLATIN [Suspect]
     Active Substance: OXALIPLATIN
     Indication: Pancreatic carcinoma
     Dosage: ?          OTHER FREQUENCY:EVERY 2 WEEKS;
     Route: 042
  3. IRINOTECAN [Concomitant]
     Active Substance: IRINOTECAN
  4. LEUCOVORIN [Concomitant]
     Active Substance: LEUCOVORIN
  5. TAMSULOSIN [Concomitant]
     Active Substance: TAMSULOSIN
  6. AMLODIPINE [Concomitant]
     Active Substance: AMLODIPINE BESYLATE
  7. ATORVASTATIN [Concomitant]
     Active Substance: ATORVASTATIN
  8. FOSINOPRIL [Concomitant]
     Active Substance: FOSINOPRIL
  9. MAGNESIUM [Concomitant]
     Active Substance: MAGNESIUM
  10. MEGESTROL [Concomitant]
     Active Substance: MEGESTROL
  11. ASPIRIN [Concomitant]
     Active Substance: ASPIRIN
  12. ZARXIO [Concomitant]
     Active Substance: FILGRASTIM-SNDZ

REACTIONS (1)
  - Death [None]
